FAERS Safety Report 9179740 (Version 1)
Quarter: 2012Q4

REPORT INFORMATION
  Report Type: Report from Study
  Country: US (occurrence: US)
  Receive Date: 20121029
  Receipt Date: 20121029
  Transmission Date: 20130627
  Serious: Yes (Other)
  Sender: FDA-Public Use
  Company Number: US-JNJFOC-20121014612

PATIENT
  Age: 38 Year

DRUGS (1)
  1. REMICADE [Suspect]
     Indication: PRODUCT USED FOR UNKNOWN INDICATION
     Dosage: on Remicade for 7 years
     Route: 042
     Dates: start: 2006

REACTIONS (5)
  - Intestinal stenosis [Unknown]
  - Hypometabolism [Unknown]
  - Weight increased [Unknown]
  - Weight loss poor [Unknown]
  - Depression [Unknown]
